FAERS Safety Report 5233613-8 (Version None)
Quarter: 2007Q1

REPORT INFORMATION
  Report Type: 
  Country: None (occurrence: None)
  Receive Date: 20070206
  Receipt Date: 20070126
  Transmission Date: 20070707
  Serious: Yes (Other)
  Sender: FDA-Public Use
  Company Number: GXKR2007GB01231

PATIENT
  Age: 37 Year
  Sex: Female

DRUGS (3)
  1. AZITHROMYCIN [Suspect]
     Indication: MULTIPLE SCLEROSIS
  2. DOXYCYCLINE [Suspect]
     Indication: MULTIPLE SCLEROSIS
  3. STATIN [Concomitant]

REACTIONS (2)
  - PARALYSIS [None]
  - SELF-MEDICATION [None]
